FAERS Safety Report 22143168 (Version 1)
Quarter: 2023Q1

REPORT INFORMATION
  Report Type: Spontaneous
  Country: US (occurrence: None)
  Receive Date: 20230324
  Receipt Date: 20230324
  Transmission Date: 20230418
  Serious: No
  Sender: FDA-Public Use
  Company Number: None

PATIENT

DRUGS (2)
  1. VASOPRESSIN [Suspect]
     Active Substance: VASOPRESSIN
     Dosage: OTHER STRENGTH : 20 UNITS PER ML ;?
     Route: 042
  2. FAMOTIDINE [Suspect]
     Active Substance: FAMOTIDINE
     Dosage: OTHER STRENGTH : 20MG PER 2 ML ;?
     Route: 042

REACTIONS (6)
  - Product dispensing error [None]
  - Product appearance confusion [None]
  - Product label confusion [None]
  - Product design confusion [None]
  - Product size issue [None]
  - Intercepted product dispensing error [None]
